FAERS Safety Report 9781843 (Version 3)
Quarter: 2014Q2

REPORT INFORMATION
  Report Type: Report from Study
  Country: CA (occurrence: CA)
  Receive Date: 20131225
  Receipt Date: 20140602
  Transmission Date: 20141212
  Serious: Yes (Other)
  Sender: FDA-Public Use
  Company Number: CA-ROCHE-1167657

PATIENT
  Age: 22 Year
  Sex: Male
  Weight: 63.5 kg

DRUGS (12)
  1. RITUXAN [Suspect]
     Indication: RHEUMATOID ARTHRITIS
     Dosage: FREQUENCY GIVEN : DAY 1, 15.?LAST RITUXIMAB DOSE ON 14/JAN/2014.
     Route: 042
     Dates: start: 20121207
  2. RITUXAN [Suspect]
     Route: 042
     Dates: start: 20121228
  3. RITUXAN [Suspect]
     Route: 042
     Dates: start: 20130628
  4. NAPROXEN [Concomitant]
  5. NORTRIPTYLINE [Concomitant]
  6. DIPHENHYDRAMINE HCL [Concomitant]
     Indication: PREMEDICATION
     Route: 048
     Dates: start: 20121207
  7. ACETAMINOPHEN [Concomitant]
     Indication: PREMEDICATION
     Route: 048
     Dates: start: 20121207
  8. METHYLPREDNISOLONE [Concomitant]
     Indication: PREMEDICATION
     Route: 042
     Dates: start: 20121207
  9. LOPRAZOLAM [Concomitant]
  10. TELMISARTAN [Concomitant]
  11. SPIRONOLACTONE [Concomitant]
  12. ZOPICLONE [Concomitant]
     Route: 065
     Dates: start: 2014

REACTIONS (12)
  - Pain [Unknown]
  - Stress [Recovered/Resolved]
  - Mastication disorder [Not Recovered/Not Resolved]
  - Dental caries [Unknown]
  - Fatigue [Not Recovered/Not Resolved]
  - Headache [Not Recovered/Not Resolved]
  - Rash [Not Recovered/Not Resolved]
  - Tooth infection [Recovered/Resolved]
  - Nausea [Recovered/Resolved]
  - Anxiety [Recovered/Resolved]
  - Blood pressure increased [Unknown]
  - Fatigue [Not Recovered/Not Resolved]
